FAERS Safety Report 13467946 (Version 1)
Quarter: 2017Q2

REPORT INFORMATION
  Report Type: Spontaneous
  Country: GB (occurrence: GB)
  Receive Date: 20170421
  Receipt Date: 20170421
  Transmission Date: 20170830
  Serious: Yes (Hospitalization)
  Sender: FDA-Public Use
  Company Number: GB-TEVA-760627ACC

PATIENT
  Age: 85 Year
  Sex: Female
  Weight: 40 kg

DRUGS (10)
  1. CARBOCYSTEINE [Concomitant]
     Active Substance: CARBOCYSTEINE
  2. OMEPRAZOL [Concomitant]
     Active Substance: OMEPRAZOLE
  3. CANDESARTAN. [Concomitant]
     Active Substance: CANDESARTAN
  4. VERAPAMIL [Concomitant]
     Active Substance: VERAPAMIL HYDROCHLORIDE
  5. WARFARIN [Suspect]
     Active Substance: WARFARIN
     Indication: ATRIAL FIBRILLATION
     Dosage: AS PER INR
     Route: 048
     Dates: end: 20170327
  6. DIGOXIN. [Concomitant]
     Active Substance: DIGOXIN
  7. FUROSEMIDE. [Concomitant]
     Active Substance: FUROSEMIDE
  8. CITALOPRAM HYDROBROMIDE. [Concomitant]
     Active Substance: CITALOPRAM HYDROBROMIDE
  9. CYCLIZINE HYDROCHLORIDE [Concomitant]
     Active Substance: CYCLIZINE HYDROCHLORIDE
  10. QUININE SULPHATE [Concomitant]
     Active Substance: QUININE SULFATE

REACTIONS (4)
  - Nausea [Unknown]
  - Melaena [Unknown]
  - Gastrointestinal haemorrhage [Recovering/Resolving]
  - Malaise [Unknown]

NARRATIVE: CASE EVENT DATE: 20170321
